FAERS Safety Report 10052638 (Version 1)
Quarter: 2014Q1

REPORT INFORMATION
  Report Type: Spontaneous
  Country: US (occurrence: None)
  Receive Date: 20140331
  Receipt Date: 20140331
  Transmission Date: 20141002
  Serious: Yes (Hospitalization)
  Sender: FDA-Public Use
  Company Number: UTC-046344

PATIENT
  Age: 47 Year
  Sex: Male

DRUGS (4)
  1. REMODULIN [Suspect]
     Indication: COR PULMONALE CHRONIC
     Dosage: 106.56 UG/KG (0.074 UG/KG, 1 IN 1 MIN), INTRAVENOUS DRIP?
     Route: 041
     Dates: start: 20080812
  2. REVATIO (SILDENAFIL CITRATE) [Concomitant]
  3. LETARIS (AMBRISENTAN) [Concomitant]
  4. COUMADIN (WARFARIN SODIUM) [Concomitant]

REACTIONS (1)
  - Dyspnoea [None]
